FAERS Safety Report 6710264-7 (Version None)
Quarter: 2010Q2

REPORT INFORMATION
  Report Type: 
  Country: None (occurrence: None)
  Receive Date: 20100430
  Receipt Date: 20100416
  Transmission Date: 20101027
  Serious: Yes (Other)
  Sender: FDA-Public Use
  Company Number: 010522

PATIENT
  Age: 23 Year

DRUGS (4)
  1. VIMPAT [Suspect]
     Indication: PARTIAL SEIZURES
     Dosage: (MAX DOSE: 150 MG; INCREASE OF 50 MG/WEEK.)
     Dates: start: 20090827, end: 20090922
  2. LAMOTRIGINE [Concomitant]
  3. PRIMIDONE [Concomitant]
  4. PHENYTOIN [Concomitant]

REACTIONS (2)
  - DEPRESSED LEVEL OF CONSCIOUSNESS [None]
  - FATIGUE [None]
